FAERS Safety Report 4925901-7 (Version None)
Quarter: 2006Q1

REPORT INFORMATION
  Report Type: 
  Country: None (occurrence: None)
  Receive Date: 20060228
  Receipt Date: 20050412
  Transmission Date: 20060701
  Serious: No
  Sender: FDA-Public Use
  Company Number: US-GLAXOSMITHKLINE-A0553800A

PATIENT
  Sex: Male

DRUGS (3)
  1. LAMICTAL [Suspect]
     Dosage: 200MG TWICE PER DAY
     Route: 048
  2. LITHIUM [Concomitant]
     Dosage: 900MG TWICE PER DAY
  3. RISPERDAL [Concomitant]
     Dosage: 6MG PER DAY

REACTIONS (1)
  - DRUG INEFFECTIVE [None]
